FAERS Safety Report 9384950 (Version 1)
Quarter: 2013Q3

REPORT INFORMATION
  Report Type: Spontaneous
  Country: US (occurrence: US)
  Receive Date: 20130705
  Receipt Date: 20130705
  Transmission Date: 20140515
  Serious: No
  Sender: FDA-Public Use
  Company Number: US-B.I. PHARMACEUTICALS,INC./RIDGEFIELD-2013-BI-18148BP

PATIENT
  Age: 57 Year
  Sex: Female
  Weight: 49 kg

DRUGS (7)
  1. SPIRIVA [Suspect]
     Indication: CHRONIC OBSTRUCTIVE PULMONARY DISEASE
     Dosage: 18 MCG
     Route: 055
     Dates: start: 2012
  2. LOVASTATIN [Concomitant]
     Indication: BLOOD CHOLESTEROL INCREASED
     Dosage: 20 MG
     Route: 048
  3. ABILIFY [Concomitant]
     Indication: ANXIETY
     Dosage: 10 MG
     Route: 048
  4. ZOLOFT [Concomitant]
     Indication: DEPRESSION
     Dosage: 100 MG
     Route: 048
  5. XANAX [Concomitant]
     Indication: ANXIETY
     Route: 048
  6. MIDODRINE [Concomitant]
     Indication: HYPOTENSION
     Dosage: 10 MG
     Route: 048
  7. ELMIRON [Concomitant]
     Indication: BLADDER DISORDER
     Dosage: 200 MG
     Route: 048

REACTIONS (1)
  - Amnesia [Not Recovered/Not Resolved]
